FAERS Safety Report 9375012 (Version 1)
Quarter: 2013Q2

REPORT INFORMATION
  Report Type: Spontaneous
  Country: IT (occurrence: IT)
  Receive Date: 20130628
  Receipt Date: 20130628
  Transmission Date: 20140414
  Serious: Yes (Other)
  Sender: FDA-Public Use
  Company Number: PHHY2013IT066561

PATIENT
  Sex: Female

DRUGS (1)
  1. ZOMETA [Suspect]
     Dosage: UNK
     Dates: start: 20130319

REACTIONS (9)
  - Cystitis haemorrhagic [Unknown]
  - Cellulitis [Unknown]
  - Pyrexia [Unknown]
  - Decreased appetite [Unknown]
  - Limb discomfort [Unknown]
  - Pain [Unknown]
  - Urticaria [Unknown]
  - Weight decreased [Unknown]
  - Proteinuria [Unknown]
